FAERS Safety Report 9151686 (Version 3)
Quarter: 2013Q2

REPORT INFORMATION
  Report Type: Spontaneous
  Country: US (occurrence: US)
  Receive Date: 20130308
  Receipt Date: 20130517
  Transmission Date: 20140414
  Serious: Yes (Other)
  Sender: FDA-Public Use
  Company Number: US-PFIZER INC-2013076823

PATIENT
  Sex: Female

DRUGS (2)
  1. XALATAN [Suspect]
     Dosage: UNK
  2. XALATAN [Suspect]

REACTIONS (2)
  - Cataract [Unknown]
  - Eye infection [Unknown]
